FAERS Safety Report 4396607-0 (Version None)
Quarter: 2004Q3

REPORT INFORMATION
  Report Type: 
  Country: None (occurrence: None)
  Receive Date: 20040713
  Receipt Date: 20040713
  Transmission Date: 20050211
  Serious: Yes (Other)
  Sender: FDA-Public Use
  Company Number: None

PATIENT

DRUGS (4)
  1. DALLERGY ER TABLET 12/20/2.5 MG LASER [Suspect]
     Indication: HYPERSENSITIVITY
     Dosage: 1 TABLET BID ORAL
     Route: 048
  2. DALLERGY ER TABLET 12/20/2.5 MG LASER [Suspect]
     Indication: SINUS DISORDER
     Dosage: 1 TABLET BID ORAL
     Route: 048
  3. DALLERGYTABLET 4/10/1.25MG LASER [Suspect]
     Indication: HYPERSENSITIVITY
     Dosage: 1/2-1 TABLET EVERY 4-6 ORAL
     Route: 048
  4. DALLERGYTABLET 4/10/1.25MG LASER [Suspect]
     Indication: SINUS DISORDER
     Dosage: 1/2-1 TABLET EVERY 4-6 ORAL
     Route: 048

REACTIONS (2)
  - MEDICATION ERROR [None]
  - PHARMACEUTICAL PRODUCT COMPLAINT [None]
